FAERS Safety Report 21482939 (Version 4)
Quarter: 2024Q1

REPORT INFORMATION
  Report Type: Report from Study
  Country: CA (occurrence: CA)
  Receive Date: 20221020
  Receipt Date: 20240205
  Transmission Date: 20240410
  Serious: Yes (Other)
  Sender: FDA-Public Use
  Company Number: CA-NOVARTISPH-NVSC2022CA233905

PATIENT
  Age: 32 Year
  Sex: Male

DRUGS (3)
  1. COSENTYX [Suspect]
     Active Substance: SECUKINUMAB
     Indication: Psoriatic arthropathy
     Dosage: 450 MG (300MG ONCE PER MONTH, 150MG 2 WEEKS AFTER)
     Route: 058
     Dates: start: 20190129
  2. PREDNISONE [Concomitant]
     Active Substance: PREDNISONE
     Indication: Product used for unknown indication
     Dosage: 1 DOSAGE FORM, QD
     Route: 048
     Dates: start: 20180124
  3. CYMBALTA [Concomitant]
     Active Substance: DULOXETINE HYDROCHLORIDE
     Indication: Fibromyalgia
     Dosage: UNK
     Route: 065
     Dates: start: 201810

REACTIONS (6)
  - Pneumonia [Unknown]
  - Back pain [Unknown]
  - Neck pain [Unknown]
  - Pain in extremity [Unknown]
  - Dysstasia [Unknown]
  - Off label use [Unknown]

NARRATIVE: CASE EVENT DATE: 20221003
